FAERS Safety Report 23630146 (Version 1)
Quarter: 2024Q1

REPORT INFORMATION
  Report Type: Report from Study
  Country: CA (occurrence: CA)
  Receive Date: 20240314
  Receipt Date: 20240314
  Transmission Date: 20240410
  Serious: Yes (Other)
  Sender: FDA-Public Use
  Company Number: CA-JNJFOC-20240322311

PATIENT
  Age: 56 Year
  Sex: Male

DRUGS (1)
  1. REMICADE [Suspect]
     Active Substance: INFLIXIMAB
     Indication: Crohn^s disease
     Dosage: DRUG ONSET DATES REPORTED AS 24/JAN/2020 AND 07/JAN/2020
     Route: 042
     Dates: start: 202001

REACTIONS (1)
  - Gastrointestinal stenosis [Recovered/Resolved]

NARRATIVE: CASE EVENT DATE: 20240217
